FAERS Safety Report 20733617 (Version 3)
Quarter: 2022Q2

REPORT INFORMATION
  Report Type: Spontaneous
  Country: US (occurrence: US)
  Receive Date: 20220421
  Receipt Date: 20220512
  Transmission Date: 20220721
  Serious: No
  Sender: FDA-Public Use
  Company Number: US-TEVA-2022-US-2028490

PATIENT
  Sex: Female

DRUGS (1)
  1. AJOVY [Suspect]
     Active Substance: FREMANEZUMAB-VFRM
     Indication: Migraine
     Dates: start: 2021

REACTIONS (5)
  - Injection site pain [Unknown]
  - Device difficult to use [Unknown]
  - Injection site rash [Unknown]
  - Injection site swelling [Unknown]
  - Device deployment issue [Unknown]
